FAERS Safety Report 7445968-4 (Version None)
Quarter: 2011Q2

REPORT INFORMATION
  Report Type: 
  Country: None (occurrence: None)
  Receive Date: 20110429
  Receipt Date: 20100427
  Transmission Date: 20111010
  Serious: No
  Sender: FDA-Public Use
  Company Number: US-ASTRAZENECA-2010SE27136

PATIENT
  Age: 92 Year
  Sex: Female

DRUGS (4)
  1. PRILOSEC [Suspect]
     Route: 048
  2. NEXIUM [Suspect]
     Route: 048
  3. PREVACID [Suspect]
     Route: 065
  4. PRILOSEC OTC [Suspect]
     Route: 048

REACTIONS (5)
  - INTESTINAL FUNCTIONAL DISORDER [None]
  - DRUG DOSE OMISSION [None]
  - DIARRHOEA [None]
  - WEIGHT DECREASED [None]
  - DRUG INEFFECTIVE [None]
